FAERS Safety Report 5056871-1 (Version None)
Quarter: 2006Q2

REPORT INFORMATION
  Report Type: 
  Country: None (occurrence: None)
  Receive Date: 20060620
  Receipt Date: 20060428
  Transmission Date: 20061013
  Serious: Yes (Hospitalization)
  Sender: FDA-Public Use
  Company Number: M-06-0349

PATIENT
  Sex: Male

DRUGS (2)
  1. PACERONE [Suspect]
     Indication: ARRHYTHMIA
     Dosage: 400 MG, BID, PO
     Route: 048
     Dates: start: 20060309, end: 20060316
  2. PACERONE [Suspect]
     Indication: ARRHYTHMIA
     Dosage: 200 MG, BID, PO
     Route: 048
     Dates: start: 20051201, end: 20060308

REACTIONS (4)
  - NAUSEA [None]
  - RESPIRATORY DISORDER [None]
  - VISION BLURRED [None]
  - VOMITING [None]
